FAERS Safety Report 9308636 (Version 1)
Quarter: 2013Q2

REPORT INFORMATION
  Report Type: Spontaneous
  Country: ZA (occurrence: ZA)
  Receive Date: 20130524
  Receipt Date: 20130524
  Transmission Date: 20140414
  Serious: Yes (Hospitalization)
  Sender: FDA-Public Use
  Company Number: ZA-AMGEN-ZAFSP2012084491

PATIENT
  Age: 38 Year
  Sex: Female

DRUGS (2)
  1. ENBREL [Suspect]
     Indication: PRODUCT USED FOR UNKNOWN INDICATION
     Dosage: 50 MG, WEEKLY
     Route: 058
     Dates: start: 20120601
  2. SALAZOPYRIN [Concomitant]
     Dosage: ONE TABLET DAILY
     Route: 048
     Dates: start: 2007

REACTIONS (3)
  - Fibromyalgia [Unknown]
  - Osteoporosis [Unknown]
  - Arthralgia [Unknown]
